FAERS Safety Report 25795973 (Version 1)
Quarter: 2025Q3

REPORT INFORMATION
  Report Type: Spontaneous
  Country: EU (occurrence: EU)
  Receive Date: 20250912
  Receipt Date: 20250912
  Transmission Date: 20251020
  Serious: Yes (Other)
  Sender: TEVA
  Company Number: EU-TEVA-VS-3370358

PATIENT
  Age: 85 Year
  Sex: Male

DRUGS (8)
  1. METOPROLOL [Suspect]
     Active Substance: METOPROLOL
     Indication: Hypertension
     Dosage: ONCE MORNINGS, FOR 40 YEARS
     Route: 065
     Dates: end: 202408
  2. LISINOPRIL [Suspect]
     Active Substance: LISINOPRIL
     Indication: Hypertension
     Dosage: ONCE EVENINGS
     Route: 065
     Dates: start: 202408
  3. AMLODIPINE [Suspect]
     Active Substance: AMLODIPINE BESYLATE
     Indication: Hypertension
     Dosage: MORNINGS AND EVENINGS, FOR 40 YEARS
     Route: 065
     Dates: end: 202408
  4. EDOXABAN [Concomitant]
     Active Substance: EDOXABAN
     Indication: Product used for unknown indication
     Route: 065
     Dates: start: 202408
  5. PANTOPRAZOLE [Concomitant]
     Active Substance: PANTOPRAZOLE
     Indication: Product used for unknown indication
     Dosage: ONCE MORNINGS
     Route: 065
     Dates: start: 202408
  6. METILDIGOXIN [Concomitant]
     Active Substance: METILDIGOXIN
     Indication: Product used for unknown indication
     Dosage: ONCE MORNINGS
     Route: 065
     Dates: start: 202408
  7. NADROPARIN CALCIUM [Concomitant]
     Active Substance: NADROPARIN CALCIUM
     Indication: Product used for unknown indication
     Route: 058
  8. TORSEMIDE [Suspect]
     Active Substance: TORSEMIDE
     Indication: Product used for unknown indication
     Dosage: ONCE MORNINGS
     Route: 065
     Dates: start: 202408

REACTIONS (4)
  - Basosquamous carcinoma [Unknown]
  - Photosensitivity reaction [Unknown]
  - Malignant melanoma [Unknown]
  - Carcinogenicity [Unknown]
